FAERS Safety Report 17757736 (Version 1)
Quarter: 2020Q2

REPORT INFORMATION
  Report Type: Spontaneous
  Country: IN (occurrence: IN)
  Receive Date: 20200507
  Receipt Date: 20200507
  Transmission Date: 20200714
  Serious: Yes (Hospitalization, Other)
  Sender: FDA-Public Use
  Company Number: IN-ALLERGAN-2018405US

PATIENT
  Sex: Male

DRUGS (1)
  1. DICYCLOMINE HCL - BP [Suspect]
     Active Substance: DICYCLOMINE HYDROCHLORIDE
     Indication: DRUG ABUSE
     Dosage: 10 MG TABLETS 5-6 TIMES DAILY FOR PAST 4 YEARS
     Route: 065

REACTIONS (7)
  - Drug withdrawal syndrome [Recovered/Resolved]
  - Intestinal obstruction [Unknown]
  - Duodenal stenosis [Unknown]
  - Drug dependence [Unknown]
  - Hyperhidrosis [Unknown]
  - Mydriasis [Unknown]
  - Tachycardia [Unknown]
